FAERS Safety Report 20382750 (Version 2)
Quarter: 2022Q3

REPORT INFORMATION
  Report Type: Report from Study
  Country: FR (occurrence: None)
  Receive Date: 20220127
  Receipt Date: 20220720
  Transmission Date: 20221027
  Serious: Yes (Other)
  Sender: FDA-Public Use
  Company Number: FR-ROCHE-3004878

PATIENT
  Age: 74 Year
  Sex: Female
  Weight: 54 kg

DRUGS (5)
  1. ATEZOLIZUMAB [Suspect]
     Active Substance: ATEZOLIZUMAB
     Indication: Anal cancer
     Dosage: 1200 MILLIGRAM EVERY 3 WEEK(S) 2 INJECTIONS
     Route: 042
     Dates: start: 20211124, end: 20211215
  2. KARDEGIC [Concomitant]
     Active Substance: ASPIRIN DL-LYSINE
     Route: 048
  3. LOSARTAN [Concomitant]
     Active Substance: LOSARTAN
     Route: 065
  4. NEBIVOLOL [Concomitant]
     Active Substance: NEBIVOLOL
     Route: 065
  5. ATORVASTATIN [Concomitant]
     Active Substance: ATORVASTATIN
     Route: 065

REACTIONS (4)
  - Rash erythematous [Not Recovered/Not Resolved]
  - Administration site cellulitis [Not Recovered/Not Resolved]
  - Erythema [Recovered/Resolved]
  - Vaccination site cellulitis [Recovered/Resolved]

NARRATIVE: CASE EVENT DATE: 20211215
